FAERS Safety Report 21531526 (Version 1)
Quarter: 2022Q4

REPORT INFORMATION
  Report Type: Spontaneous
  Country: US (occurrence: US)
  Receive Date: 20221031
  Receipt Date: 20221031
  Transmission Date: 20230113
  Serious: Yes (Other)
  Sender: FDA-Public Use
  Company Number: US-009507513-2210USA010311

PATIENT
  Sex: Female

DRUGS (3)
  1. TRUSOPT [Suspect]
     Active Substance: DORZOLAMIDE HYDROCHLORIDE
     Dosage: 3X DAILY
  2. DORZOLAMIDE [Suspect]
     Active Substance: DORZOLAMIDE
  3. PHOSPHOLINE IODIDE [Suspect]
     Active Substance: ECHOTHIOPHATE IODIDE

REACTIONS (8)
  - Suicide threat [Unknown]
  - Stress [Unknown]
  - Ill-defined disorder [Unknown]
  - Drug ineffective [Unknown]
  - Thinking abnormal [Unknown]
  - Self-injurious ideation [Unknown]
  - Illness [Unknown]
  - Product availability issue [Unknown]

NARRATIVE: CASE EVENT DATE: 20220101
